FAERS Safety Report 5399721-6 (Version None)
Quarter: 2007Q3

REPORT INFORMATION
  Report Type: 
  Country: None (occurrence: None)
  Receive Date: 20070727
  Receipt Date: 20070717
  Transmission Date: 20080115
  Serious: Yes (Hospitalization, Other)
  Sender: FDA-Public Use
  Company Number: US-PFIZER INC-2007060290

PATIENT
  Sex: Female
  Weight: 87.5 kg

DRUGS (11)
  1. CHANTIX [Suspect]
     Indication: SMOKING CESSATION THERAPY
  2. ALPRAZOLAM [Interacting]
     Indication: ANXIETY
  3. TRILEPTAL [Concomitant]
  4. BENICAR [Concomitant]
  5. ATENOLOL [Concomitant]
  6. ACIPHEX [Concomitant]
  7. NASONEX [Concomitant]
  8. VITAMIN D [Concomitant]
  9. IBUPROFEN [Concomitant]
  10. DEMEROL [Concomitant]
  11. CALCIUM CHLORIDE [Concomitant]

REACTIONS (8)
  - ANXIETY [None]
  - DISTURBANCE IN ATTENTION [None]
  - DRUG INTERACTION [None]
  - FATIGUE [None]
  - HEADACHE [None]
  - MENTAL IMPAIRMENT [None]
  - MYOCARDIAL INFARCTION [None]
  - SOMNOLENCE [None]
